FAERS Safety Report 5008166-X (Version None)
Quarter: 2006Q2

REPORT INFORMATION
  Report Type: 
  Country: None (occurrence: None)
  Receive Date: 20060404
  Receipt Date: 20051028
  Transmission Date: 20061013
  Serious: Yes (Other)
  Sender: FDA-Public Use
  Company Number: 2005148530

PATIENT
  Age: 37 Year
  Sex: Male
  Weight: 86.637 kg

DRUGS (7)
  1. GEODON [Suspect]
     Indication: SCHIZOPHRENIA
     Dosage: 120 MG (60 MG, 2 IN 1 D),
     Dates: start: 20051024, end: 20051027
  2. FLUOXETINE [Concomitant]
  3. MULTIVITAMIN [Concomitant]
  4. MILK OF MAGNESIA TAB [Concomitant]
  5. ALUMINUM HYDROXIDE AND MAGNESIUM TRISILICATE [Concomitant]
  6. ACETAMINOPHEN [Concomitant]
  7. LORAZEPAM [Concomitant]

REACTIONS (1)
  - PRIAPISM [None]
